FAERS Safety Report 10630238 (Version 2)
Quarter: 2014Q4

REPORT INFORMATION
  Report Type: Spontaneous
  Country: US (occurrence: US)
  Receive Date: 20141205
  Receipt Date: 20141205
  Transmission Date: 20150529
  Serious: No
  Sender: FDA-Public Use
  Company Number: US-BRISTOL-MYERS SQUIBB COMPANY-21392188

PATIENT
  Age: 64 Year
  Sex: Female

DRUGS (1)
  1. BYDUREON [Suspect]
     Active Substance: EXENATIDE

REACTIONS (9)
  - Injection site pruritus [Unknown]
  - Injection site swelling [Unknown]
  - Weight decreased [Unknown]
  - Decreased appetite [Unknown]
  - Lower extremity mass [Unknown]
  - Injection site erythema [Unknown]
  - Injection site reaction [Unknown]
  - Nausea [Unknown]
  - Injection site induration [Unknown]

NARRATIVE: CASE EVENT DATE: 20140725
